FAERS Safety Report 12841229 (Version 1)
Quarter: 2016Q4

REPORT INFORMATION
  Report Type: Spontaneous
  Country: US (occurrence: US)
  Receive Date: 20161012
  Receipt Date: 20161012
  Transmission Date: 20170207
  Serious: No
  Sender: FDA-Public Use
  Company Number: US-PERRIGO-16US015149

PATIENT
  Age: 51 Year
  Sex: Female
  Weight: 71.66 kg

DRUGS (4)
  1. NICOTINE POLACRILEX [Suspect]
     Active Substance: NICOTINE
     Dosage: 2 MG, SINGLE
     Route: 002
     Dates: start: 201511, end: 201511
  2. NICOTINE POLACRILEX [Suspect]
     Active Substance: NICOTINE
     Indication: SMOKING CESSATION THERAPY
     Dosage: 2 MG, SINGLE
     Route: 002
     Dates: start: 201510, end: 201510
  3. NICOTINE POLACRILEX [Suspect]
     Active Substance: NICOTINE
     Dosage: 2 MG, SINGLE
     Route: 002
     Dates: start: 201601, end: 201601
  4. NICOTINE POLACRILEX [Suspect]
     Active Substance: NICOTINE
     Dosage: 2 MG, SINGLE
     Route: 002
     Dates: start: 201512, end: 201512

REACTIONS (5)
  - Tongue blistering [Recovered/Resolved]
  - Gingival blister [Recovered/Resolved]
  - Oral pain [Recovered/Resolved]
  - Nausea [Recovered/Resolved]
  - Dizziness [Recovered/Resolved]

NARRATIVE: CASE EVENT DATE: 201510
